FAERS Safety Report 16185546 (Version 1)
Quarter: 2019Q2

REPORT INFORMATION
  Report Type: Spontaneous
  Country: BE (occurrence: BE)
  Receive Date: 20190411
  Receipt Date: 20190411
  Transmission Date: 20190711
  Serious: Yes (Other)
  Sender: FDA-Public Use
  Company Number: BE-PFIZER INC-2019150180

PATIENT
  Sex: Male
  Weight: 69 kg

DRUGS (2)
  1. CARBOPLATIN. [Suspect]
     Active Substance: CARBOPLATIN
     Indication: EPITHELIOID MESOTHELIOMA
     Dosage: UNK
     Route: 065
     Dates: start: 20170606, end: 201710
  2. PEMETREXED. [Suspect]
     Active Substance: PEMETREXED
     Indication: EPITHELIOID MESOTHELIOMA
     Dosage: UNK
     Route: 065
     Dates: start: 20170606, end: 201710

REACTIONS (3)
  - Bone marrow failure [Unknown]
  - Neoplasm progression [Unknown]
  - Renal impairment [Unknown]

NARRATIVE: CASE EVENT DATE: 201710
